FAERS Safety Report 6534725-9 (Version None)
Quarter: 2010Q1

REPORT INFORMATION
  Report Type: 
  Country: None (occurrence: None)
  Receive Date: 20100108
  Receipt Date: 20091007
  Transmission Date: 20100710
  Serious: No
  Sender: FDA-Public Use
  Company Number: 2009-00658

PATIENT
  Age: 28 Year
  Sex: Female
  Weight: 56.6996 kg

DRUGS (1)
  1. COLD REMEDY NASAL GEL [Suspect]
     Dosage: QD - 1 DAY
     Dates: start: 20091004, end: 20091005

REACTIONS (1)
  - ANOSMIA [None]
